FAERS Safety Report 9919349 (Version 2)
Quarter: 2014Q1

REPORT INFORMATION
  Report Type: Spontaneous
  Country: US (occurrence: US)
  Receive Date: 20140224
  Receipt Date: 20140326
  Transmission Date: 20141002
  Serious: Yes (Congenital Anomaly, Other)
  Sender: FDA-Public Use
  Company Number: US-PFIZER INC-2014049300

PATIENT
  Sex: Female

DRUGS (16)
  1. ZOLOFT [Suspect]
     Dosage: UNK
     Route: 064
     Dates: start: 20090629
  2. VISTARIL [Concomitant]
     Dosage: UNK
     Route: 064
  3. PHENERGAN [Concomitant]
     Dosage: UNK
     Route: 064
  4. ACETAMINOPHEN-CODEINE [Concomitant]
     Dosage: UNK
     Route: 064
  5. FLUCONAZOLE [Concomitant]
     Dosage: UNK
     Route: 064
  6. CLINDAMYCIN [Concomitant]
     Dosage: UNK
     Route: 064
  7. TYLENOL [Concomitant]
     Dosage: UNK
     Route: 064
  8. CEFUROXIME [Concomitant]
     Dosage: UNK
     Route: 064
  9. SEPTRA DS [Concomitant]
     Dosage: UNK
     Route: 064
  10. RANITIDINE [Concomitant]
     Dosage: UNK
     Route: 064
  11. AZITHROMYCIN [Concomitant]
     Dosage: UNK
     Route: 064
  12. NITROFURANTOIN [Concomitant]
     Dosage: UNK
     Route: 064
  13. HYDROCODONE-APAP [Concomitant]
     Dosage: UNK
     Route: 064
  14. MORPHINE [Concomitant]
     Dosage: UNK
     Route: 064
  15. CEFTRIAXONE [Concomitant]
     Dosage: UNK
     Route: 064
  16. TERCONAZOLE [Concomitant]
     Dosage: UNK
     Route: 064

REACTIONS (4)
  - Maternal exposure during pregnancy [Unknown]
  - Anomaly of external ear congenital [Unknown]
  - Facial asymmetry [Unknown]
  - Eyelid ptosis congenital [Unknown]
